FAERS Safety Report 13373939 (Version 3)
Quarter: 2021Q3

REPORT INFORMATION
  Report Type: Spontaneous
  Country: US (occurrence: US)
  Receive Date: 20170327
  Receipt Date: 20210721
  Transmission Date: 20211014
  Serious: Yes (Other)
  Sender: FDA-Public Use
  Company Number: US-PFIZER INC-2016372053

PATIENT
  Age: 49 Year
  Sex: Female

DRUGS (21)
  1. CYCLOBENZAPRINE HCL [Concomitant]
     Active Substance: CYCLOBENZAPRINE HYDROCHLORIDE
     Indication: MUSCLE SPASMS
  2. ALPRAZOLAM. [Concomitant]
     Active Substance: ALPRAZOLAM
     Indication: DEPRESSION
     Dosage: 0.25 MG, AS NEEDED (ONE TABLET EVERY 12 HOURS)
     Route: 048
     Dates: start: 20150925
  3. FERROUS SULFATE. [Concomitant]
     Active Substance: FERROUS SULFATE
     Dosage: 325 MG, 1X/DAY
     Route: 048
     Dates: start: 20150925
  4. METOPROLOL SUCCINATE. [Concomitant]
     Active Substance: METOPROLOL SUCCINATE
     Indication: HEART RATE INCREASED
  5. PROMETHAZINE HCL [Concomitant]
     Active Substance: PROMETHAZINE HYDROCHLORIDE
     Indication: NAUSEA
     Dosage: 25 MG, AS NEEDED (EVERY 6 HOURS)
     Route: 048
     Dates: start: 20160925
  6. LYRICA [Suspect]
     Active Substance: PREGABALIN
     Indication: MIGRAINE
     Dosage: 150 MG, 2X/DAY
     Route: 048
     Dates: start: 20160720
  7. METOPROLOL SUCCINATE. [Concomitant]
     Active Substance: METOPROLOL SUCCINATE
     Indication: PALPITATIONS
     Dosage: 50 MG, DAILY (BEDTIME)
     Route: 048
     Dates: start: 20150925
  8. ALPRAZOLAM. [Concomitant]
     Active Substance: ALPRAZOLAM
     Indication: PANIC ATTACK
  9. FLUOXETINE HCL [Concomitant]
     Active Substance: FLUOXETINE HYDROCHLORIDE
     Indication: SEROTONIN SYNDROME
  10. ACETAMINOPHEN W/HYDROCODONE [Concomitant]
     Active Substance: ACETAMINOPHEN\HYDROCODONE
     Indication: MIGRAINE
  11. IMIPRAMINE HCL [Concomitant]
     Active Substance: IMIPRAMINE HYDROCHLORIDE
     Indication: MIGRAINE
     Dosage: 25 MG, UNK (1 IN THE MORNING, 2 AT BEDTIME)
     Route: 048
  12. LYRICA [Suspect]
     Active Substance: PREGABALIN
     Dosage: 150 MG, 2X/DAY
     Route: 048
     Dates: start: 20170301
  13. BUPROPION HCL [Concomitant]
     Active Substance: BUPROPION HYDROCHLORIDE
     Indication: DEPRESSION
     Dosage: 100 MG, 3X/DAY
     Route: 048
     Dates: start: 20150925
  14. FLUOXETINE HCL [Concomitant]
     Active Substance: FLUOXETINE HYDROCHLORIDE
     Indication: DEPRESSION
     Dosage: 10 MG, DAILY
     Route: 048
     Dates: start: 20150925
  15. OMEPRAZOLE. [Concomitant]
     Active Substance: OMEPRAZOLE
     Dosage: 20 MG, DAILY
     Route: 048
     Dates: start: 20150925
  16. ZONISAMIDE. [Concomitant]
     Active Substance: ZONISAMIDE
     Indication: MIGRAINE
     Dosage: 100 MG, UNK (1 CAPSULE IN THE AM, 2 CAPSULES AT BEDTIME)
     Dates: start: 20150925
  17. CYCLOBENZAPRINE HCL [Concomitant]
     Active Substance: CYCLOBENZAPRINE HYDROCHLORIDE
     Indication: BACK PAIN
     Dosage: 10 MG, 2X/DAY
     Route: 048
     Dates: start: 20160925
  18. ACETAMINOPHEN W/HYDROCODONE [Concomitant]
     Active Substance: ACETAMINOPHEN\HYDROCODONE
     Indication: PAIN
     Dosage: 1 DF, AS NEEDED [HYDROCODONE 5 MG] [ACETAMINOPHEN 325 MG]
     Dates: start: 20150925
  19. KETOROLAC TROMETHAMINE. [Concomitant]
     Active Substance: KETOROLAC TROMETHAMINE
     Indication: MIGRAINE
     Dosage: 10 MG, AS NEEDED (1 TAB DAILY (UP TO 5 DAYS MAX))
     Route: 048
     Dates: start: 20150925
  20. MELOXICAM. [Concomitant]
     Active Substance: MELOXICAM
     Indication: PLANTAR FASCIITIS
     Dosage: 7.5 MG, DAILY
     Route: 048
     Dates: start: 20160622
  21. VERAPAMIL HCL [Concomitant]
     Active Substance: VERAPAMIL HYDROCHLORIDE
     Indication: MIGRAINE PROPHYLAXIS
     Dosage: 120 MG, 2X/DAY
     Route: 048
     Dates: start: 20150925

REACTIONS (6)
  - Pain [Unknown]
  - Off label use [Unknown]
  - Foot fracture [Unknown]
  - Pain in extremity [Unknown]
  - Blister [Unknown]
  - Illness [Unknown]
